FAERS Safety Report 24784857 (Version 1)
Quarter: 2024Q4

REPORT INFORMATION
  Report Type: Spontaneous
  Country: US (occurrence: US)
  Receive Date: 20241228
  Receipt Date: 20241228
  Transmission Date: 20250115
  Serious: No
  Sender: SANOFI AVENTIS
  Company Number: US-SA-2024SA381328

PATIENT
  Age: 57 Year
  Sex: Female

DRUGS (1)
  1. DUPIXENT [Suspect]
     Active Substance: DUPILUMAB
     Indication: Dermatitis atopic
     Dosage: 300 MG, QOW
     Dates: start: 202406

REACTIONS (4)
  - Dermatitis atopic [Unknown]
  - Dry skin [Unknown]
  - Skin exfoliation [Unknown]
  - Skin hypertrophy [Unknown]

NARRATIVE: CASE EVENT DATE: 20240101
